FAERS Safety Report 5315884-2 (Version None)
Quarter: 2007Q1

REPORT INFORMATION
  Report Type: 
  Country: None (occurrence: None)
  Receive Date: 20070130
  Receipt Date: 20061228
  Transmission Date: 20070707
  Serious: No
  Sender: FDA-Public Use
  Company Number: 200710053US

PATIENT
  Sex: Female

DRUGS (2)
  1. KETEK [Suspect]
     Indication: COUGH
     Dates: start: 20061014
  2. KETEK [Suspect]
     Indication: PYREXIA
     Dates: start: 20061014

REACTIONS (2)
  - AGEUSIA [None]
  - ANOSMIA [None]
